FAERS Safety Report 20445337 (Version 1)
Quarter: 2022Q1

REPORT INFORMATION
  Report Type: Spontaneous
  Country: US (occurrence: US)
  Receive Date: 20220208
  Receipt Date: 20220208
  Transmission Date: 20220424
  Serious: Yes (Other)
  Sender: FDA-Public Use
  Company Number: US-ALLERGAN-2204330US

PATIENT
  Sex: Male

DRUGS (4)
  1. REFRESH TEARS [Suspect]
     Active Substance: CARBOXYMETHYLCELLULOSE SODIUM
     Indication: Dry eye
     Dosage: ONE DROP PER EYE
  2. REFRESH TEARS [Suspect]
     Active Substance: CARBOXYMETHYLCELLULOSE SODIUM
     Indication: Cataract
  3. REFRESH TEARS [Suspect]
     Active Substance: CARBOXYMETHYLCELLULOSE SODIUM
     Indication: Asthenopia
  4. REFRESH TEARS [Suspect]
     Active Substance: CARBOXYMETHYLCELLULOSE SODIUM
     Indication: Asthenopia

REACTIONS (7)
  - Cataract operation [Recovering/Resolving]
  - Cataract operation [Recovering/Resolving]
  - Lacrimation increased [Not Recovered/Not Resolved]
  - Off label use [Unknown]
  - Product impurity [Unknown]
  - Eye irritation [Recovered/Resolved]
  - Product lot number issue [Unknown]

NARRATIVE: CASE EVENT DATE: 20211101
